FAERS Safety Report 8390276-0 (Version None)
Quarter: 2012Q2

REPORT INFORMATION
  Report Type: 
  Country: None (occurrence: None)
  Receive Date: 20120529
  Receipt Date: 20120523
  Transmission Date: 20120825
  Serious: Yes (Other)
  Sender: FDA-Public Use
  Company Number: FR-SANOFI-AVENTIS-2012SA023875

PATIENT
  Age: 75 Year
  Sex: Female
  Weight: 70 kg

DRUGS (9)
  1. SECTRAL [Concomitant]
     Route: 048
  2. LERCANIDIPINE [Concomitant]
     Route: 048
  3. ALLOPURINOL [Concomitant]
     Route: 048
  4. ALDALIX [Concomitant]
     Route: 048
  5. ATORVASTATIN [Concomitant]
     Route: 048
  6. TRANXENE [Concomitant]
     Route: 048
  7. ACETAMINOPHEN [Concomitant]
     Route: 048
  8. LOVENOX [Suspect]
     Indication: THROMBOSIS PROPHYLAXIS
     Route: 058
     Dates: start: 20120126, end: 20120406
  9. FLECAINIDE ACETATE [Concomitant]
     Route: 048

REACTIONS (1)
  - RENAL FAILURE [None]
